FAERS Safety Report 17396624 (Version 1)
Quarter: 2020Q1

REPORT INFORMATION
  Report Type: Spontaneous
  Country: KR (occurrence: KR)
  Receive Date: 20200210
  Receipt Date: 20200210
  Transmission Date: 20200409
  Serious: Yes (Other)
  Sender: FDA-Public Use
  Company Number: KR-LEO PHARMA-327848

PATIENT
  Age: 76 Year
  Sex: Male

DRUGS (1)
  1. DAIVOBET [Suspect]
     Active Substance: BETAMETHASONE DIPROPIONATE\CALCIPOTRIENE
     Indication: ECZEMA
     Route: 061

REACTIONS (3)
  - Product use in unapproved indication [Unknown]
  - Contraindicated product administered [Unknown]
  - Molluscum contagiosum [Recovered/Resolved with Sequelae]
